FAERS Safety Report 8763199 (Version 1)
Quarter: 2012Q4

REPORT INFORMATION
  Report Type: 
  Country: TR (occurrence: TR)
  Receive Date: 20120831
  Receipt Date: 20120831
  Transmission Date: 20130627
  Serious: Yes (Other)
  Sender: FDA-Public Use
  Company Number: TR-US-EMD SERONO, INC.-7157587

PATIENT
  Sex: Male
  Weight: 83 kg

DRUGS (3)
  1. REBIF [Suspect]
     Indication: MULTIPLE SCLEROSIS
     Route: 058
     Dates: start: 20100801
  2. ACETAMINOPHEN [Suspect]
     Indication: PAIN
     Route: 048
     Dates: start: 20100801
  3. ACETAMINOPHEN [Suspect]
     Indication: ANTIPYRESIS

REACTIONS (1)
  - Erysipelas [Not Recovered/Not Resolved]
